FAERS Safety Report 18988079 (Version 1)
Quarter: 2021Q1

REPORT INFORMATION
  Report Type: Spontaneous
  Country: US (occurrence: US)
  Receive Date: 20210309
  Receipt Date: 20210309
  Transmission Date: 20210420
  Serious: Yes (Other)
  Sender: FDA-Public Use
  Company Number: US-GLAXOSMITHKLINE-USCH2021009907

PATIENT
  Age: 67 Year
  Sex: Female

DRUGS (1)
  1. BIOTENE GENTLE MINT (SODIUM FLUORIDE) [Suspect]
     Active Substance: SODIUM FLUORIDE
     Indication: DRY MOUTH
     Dosage: UNK
     Dates: start: 20210224, end: 20210225

REACTIONS (2)
  - Burn oral cavity [Unknown]
  - Throat irritation [Unknown]
